FAERS Safety Report 7148420-9 (Version None)
Quarter: 2010Q4

REPORT INFORMATION
  Report Type: 
  Country: None (occurrence: None)
  Receive Date: 20101124
  Receipt Date: 20101122
  Transmission Date: 20110411
  Serious: Yes (Death, Hospitalization)
  Sender: FDA-Public Use
  Company Number: 2010SP061318

PATIENT
  Age: 54 Year
  Sex: Female

DRUGS (5)
  1. TEMODAL [Suspect]
     Indication: OLIGODENDROGLIOMA
     Dosage: 200 MG/M2;QD;PO
     Route: 048
     Dates: start: 20100904, end: 20100909
  2. MEDROL [Concomitant]
  3. DEPAKENE [Concomitant]
  4. NEXIUM [Concomitant]
  5. LANTUS [Concomitant]

REACTIONS (3)
  - FEBRILE BONE MARROW APLASIA [None]
  - GROIN ABSCESS [None]
  - SEPTIC SHOCK [None]
